FAERS Safety Report 16741099 (Version 1)
Quarter: 2019Q3

REPORT INFORMATION
  Report Type: Spontaneous
  Country: US (occurrence: US)
  Receive Date: 20190826
  Receipt Date: 20190826
  Transmission Date: 20191005
  Serious: Yes (Other)
  Sender: FDA-Public Use
  Company Number: US-GLAXOSMITHKLINE-US2019AMR150950

PATIENT

DRUGS (1)
  1. BENLYSTA [Suspect]
     Active Substance: BELIMUMAB
     Indication: PRODUCT USED FOR UNKNOWN INDICATION
     Dosage: UNK
     Route: 065

REACTIONS (7)
  - Adverse drug reaction [Unknown]
  - Influenza like illness [Unknown]
  - Stevens-Johnson syndrome [Unknown]
  - Mixed connective tissue disease [Unknown]
  - Burning sensation [Unknown]
  - Rash [Unknown]
  - Condition aggravated [Unknown]
